FAERS Safety Report 19370057 (Version 2)
Quarter: 2021Q2

REPORT INFORMATION
  Report Type: Report from Study
  Country: KR (occurrence: KR)
  Receive Date: 20210604
  Receipt Date: 20210610
  Transmission Date: 20210717
  Serious: Yes (Other)
  Sender: FDA-Public Use
  Company Number: KR-AMGEN-KORCT2021083839

PATIENT
  Age: 44 Year
  Sex: Female

DRUGS (89)
  1. DECITABINE. [Concomitant]
     Active Substance: DECITABINE
     Dosage: 20 UNK, QD
     Route: 065
     Dates: start: 20111219, end: 20111219
  2. DECITABINE. [Concomitant]
     Active Substance: DECITABINE
     Dosage: 20 UNK, QD
     Route: 065
     Dates: start: 20111223, end: 20111223
  3. FUROSEMIDE. [Concomitant]
     Active Substance: FUROSEMIDE
     Indication: PRODUCT USED FOR UNKNOWN INDICATION
     Dosage: 20 MILLIGRAM
     Route: 065
     Dates: start: 20120102, end: 20120102
  4. ITRACONAZOLE. [Concomitant]
     Active Substance: ITRACONAZOLE
     Dosage: 20 UNK
     Route: 065
     Dates: start: 20110919, end: 20111016
  5. LEVOFLOXACIN. [Concomitant]
     Active Substance: LEVOFLOXACIN
     Dosage: 500 MILLIGRAM
     Route: 065
     Dates: start: 20110919, end: 20111016
  6. MISOPROSTOL. [Concomitant]
     Active Substance: MISOPROSTOL
     Indication: PRODUCT USED FOR UNKNOWN INDICATION
     Dosage: 200 UNK
     Route: 065
     Dates: start: 20111122, end: 20111201
  7. MISOPROSTOL. [Concomitant]
     Active Substance: MISOPROSTOL
     Dosage: 200 UNK
     Route: 065
     Dates: start: 20120106, end: 20120110
  8. LIPASE;MOLSIN;PANCREATIN [Concomitant]
     Indication: PRODUCT USED FOR UNKNOWN INDICATION
     Dosage: 1 UNK
     Route: 065
     Dates: start: 20120116, end: 20120116
  9. PARACETAMOL [Concomitant]
     Active Substance: ACETAMINOPHEN
     Dosage: 650 MILLIGRAM
     Route: 065
     Dates: start: 20120106, end: 20120107
  10. PREDNISOLONE. [Concomitant]
     Active Substance: PREDNISOLONE
     Dosage: 30 MILLIGRAM
     Route: 065
     Dates: start: 20120102, end: 20120104
  11. FILGRASTIM [Suspect]
     Active Substance: FILGRASTIM
     Dosage: 0.7 UNK
     Route: 065
     Dates: start: 20120117, end: 20120117
  12. DECITABINE. [Concomitant]
     Active Substance: DECITABINE
     Dosage: 20 UNK, QD
     Route: 065
     Dates: start: 20110825, end: 20110825
  13. DECITABINE. [Concomitant]
     Active Substance: DECITABINE
     Dosage: 20 UNK, QD
     Route: 065
     Dates: start: 20111222, end: 20111222
  14. CEFTIZOXIME [Concomitant]
     Active Substance: CEFTIZOXIME
     Dosage: 1000 MILLIGRAM
     Route: 065
     Dates: start: 20120117, end: 20120117
  15. CELECOXIB. [Concomitant]
     Active Substance: CELECOXIB
     Indication: PRODUCT USED FOR UNKNOWN INDICATION
     Dosage: 200 MILLIGRAM
     Route: 065
     Dates: start: 20120127, end: 20120209
  16. DIFLUCORTOLONE [Concomitant]
     Active Substance: DIFLUCORTOLONE
     Indication: PRODUCT USED FOR UNKNOWN INDICATION
     Dosage: 1 UNK
     Route: 065
     Dates: start: 20111028, end: 20111111
  17. KETOROLAC [Concomitant]
     Active Substance: KETOROLAC TROMETHAMINE
     Indication: PRODUCT USED FOR UNKNOWN INDICATION
     Dosage: 30 MILLIGRAM
     Route: 065
     Dates: start: 20120112, end: 20120112
  18. PARACETAMOL [Concomitant]
     Active Substance: ACETAMINOPHEN
     Dosage: 650 MILLIGRAM
     Route: 065
     Dates: start: 20120105, end: 20120105
  19. PREDNISOLONE. [Concomitant]
     Active Substance: PREDNISOLONE
     Dosage: 5 MILLIGRAM
     Route: 065
     Dates: start: 20120109, end: 20120110
  20. FILGRASTIM [Suspect]
     Active Substance: FILGRASTIM
     Dosage: 0.7 UNK
     Route: 065
     Dates: start: 20120114, end: 20120116
  21. DECITABINE. [Concomitant]
     Active Substance: DECITABINE
     Dosage: 20 UNK, QD
     Route: 065
     Dates: start: 20110923, end: 20110923
  22. DECITABINE. [Concomitant]
     Active Substance: DECITABINE
     Dosage: 20 UNK, QD
     Route: 065
     Dates: start: 20111221, end: 20111221
  23. BENPROPERINE [Concomitant]
     Active Substance: BENPROPERINE
     Indication: PRODUCT USED FOR UNKNOWN INDICATION
     Dosage: 60 MILLIGRAM
     Route: 065
     Dates: start: 20120115, end: 20120117
  24. CHLORPHENAMINE [Concomitant]
     Active Substance: CHLORPHENIRAMINE MALEATE
     Dosage: 4 MILLIGRAM
     Route: 065
     Dates: start: 20120109, end: 20120111
  25. CHLORPHENAMINE [Concomitant]
     Active Substance: CHLORPHENIRAMINE MALEATE
     Dosage: 8 MILLIGRAM
     Route: 065
     Dates: start: 20120108, end: 20120108
  26. CIMETIDINE [Concomitant]
     Active Substance: CIMETIDINE
     Dosage: 600 MILLIGRAM
     Route: 065
     Dates: start: 20120113, end: 20120114
  27. LAFUTIDINE [Concomitant]
     Active Substance: LAFUTIDINE
     Indication: PRODUCT USED FOR UNKNOWN INDICATION
     Dosage: 20 MILLIGRAM
     Route: 065
     Dates: start: 20120116, end: 20120116
  28. DECITABINE. [Concomitant]
     Active Substance: DECITABINE
     Dosage: 20 UNK, QD
     Route: 065
     Dates: start: 20110823, end: 20110823
  29. DECITABINE. [Concomitant]
     Active Substance: DECITABINE
     Dosage: 20 UNK, QD
     Route: 065
     Dates: start: 20110920, end: 20110920
  30. DECITABINE. [Concomitant]
     Active Substance: DECITABINE
     Dosage: 20 UNK, QD
     Route: 065
     Dates: start: 20111028, end: 20111028
  31. CEFPIROME [Concomitant]
     Active Substance: CEFPIROME
     Indication: PRODUCT USED FOR UNKNOWN INDICATION
     Dosage: 4000 MILLIGRAM
     Route: 065
     Dates: start: 20120105, end: 20120110
  32. CHLORAMPHENICOL [Concomitant]
     Active Substance: CHLORAMPHENICOL
     Indication: PRODUCT USED FOR UNKNOWN INDICATION
     Dosage: 500 MILLIGRAM
     Route: 065
     Dates: start: 20111028, end: 20111111
  33. CIMETIDINE [Concomitant]
     Active Substance: CIMETIDINE
     Indication: PRODUCT USED FOR UNKNOWN INDICATION
     Dosage: 400 MILLIGRAM
     Route: 065
     Dates: start: 20120112, end: 20120112
  34. ITRACONAZOLE. [Concomitant]
     Active Substance: ITRACONAZOLE
     Dosage: 20 MILLIGRAM
     Route: 065
     Dates: start: 20111110, end: 20111124
  35. METOCLOPRAMIDE. [Concomitant]
     Active Substance: METOCLOPRAMIDE
     Indication: PRODUCT USED FOR UNKNOWN INDICATION
     Dosage: 20 MILLIGRAM
     Route: 065
     Dates: start: 20111110, end: 20111110
  36. LIPASE;MOLSIN;PANCREATIN [Concomitant]
     Dosage: 2 UNK
     Route: 065
     Dates: start: 20120127, end: 20120131
  37. NETILMICIN [Concomitant]
     Active Substance: NETILMICIN
     Indication: PRODUCT USED FOR UNKNOWN INDICATION
     Dosage: 300 MILLIGRAM
     Route: 065
     Dates: start: 20111110, end: 20111117
  38. PARACETAMOL [Concomitant]
     Active Substance: ACETAMINOPHEN
     Dosage: 650 MILLIGRAM
     Route: 065
     Dates: start: 20120114, end: 20120114
  39. FILGRASTIM [Suspect]
     Active Substance: FILGRASTIM
     Indication: PRODUCT USED FOR UNKNOWN INDICATION
     Dosage: 300 UNK
     Route: 065
     Dates: start: 20111109, end: 20111118
  40. DECITABINE. [Concomitant]
     Active Substance: DECITABINE
     Dosage: 20 UNK, QD
     Route: 065
     Dates: start: 20111024, end: 20111024
  41. DECITABINE. [Concomitant]
     Active Substance: DECITABINE
     Dosage: 20 UNK, QD
     Route: 065
     Dates: start: 20111025, end: 20111025
  42. DECITABINE. [Concomitant]
     Active Substance: DECITABINE
     Dosage: 20 UNK, QD
     Route: 065
     Dates: start: 20111220, end: 20111220
  43. CHLORPHENAMINE [Concomitant]
     Active Substance: CHLORPHENIRAMINE MALEATE
     Indication: PRODUCT USED FOR UNKNOWN INDICATION
     Dosage: 4 MILLIGRAM
     Route: 065
     Dates: start: 20111109, end: 20111109
  44. CHLORPHENAMINE [Concomitant]
     Active Substance: CHLORPHENIRAMINE MALEATE
     Dosage: 4 MILLIGRAM
     Route: 065
     Dates: start: 20120114, end: 20120115
  45. DEXAMETHASONE. [Concomitant]
     Active Substance: DEXAMETHASONE
     Indication: PRODUCT USED FOR UNKNOWN INDICATION
     Dosage: 5 MILLIGRAM
     Route: 065
     Dates: start: 20120102, end: 20120102
  46. LAFUTIDINE [Concomitant]
     Active Substance: LAFUTIDINE
     Dosage: 10 MILLIGRAM
     Route: 065
     Dates: start: 20120117, end: 20120117
  47. LEVOFLOXACIN. [Concomitant]
     Active Substance: LEVOFLOXACIN
     Indication: PRODUCT USED FOR UNKNOWN INDICATION
     Dosage: 500 MILLIGRAM
     Route: 065
     Dates: start: 20110818, end: 20110918
  48. MISOPROSTOL. [Concomitant]
     Active Substance: MISOPROSTOL
     Dosage: 200 UNK
     Route: 065
     Dates: start: 20111209, end: 20111218
  49. NETILMICIN [Concomitant]
     Active Substance: NETILMICIN
     Dosage: 300 MILLIGRAM
     Route: 065
     Dates: start: 20120105, end: 20120110
  50. PARACETAMOL [Concomitant]
     Active Substance: ACETAMINOPHEN
     Dosage: 650 MILLIGRAM
     Route: 065
     Dates: start: 20120116, end: 20120116
  51. PREDNISOLONE. [Concomitant]
     Active Substance: PREDNISOLONE
     Dosage: 20 MILLIGRAM
     Route: 065
     Dates: start: 20120107, end: 20120107
  52. RANITIDINE. [Concomitant]
     Active Substance: RANITIDINE
     Indication: PRODUCT USED FOR UNKNOWN INDICATION
     Dosage: 100 MILLIGRAM
     Route: 065
     Dates: start: 20111109, end: 20111109
  53. ZIPEPROL [Concomitant]
     Active Substance: ZIPEPROL
     Indication: PRODUCT USED FOR UNKNOWN INDICATION
     Dosage: 30 UNK
     Route: 065
     Dates: start: 20120114, end: 20120114
  54. FILGRASTIM [Suspect]
     Active Substance: FILGRASTIM
     Dosage: 0.7 UNK
     Route: 065
     Dates: start: 20120105, end: 20120105
  55. DECITABINE. [Concomitant]
     Active Substance: DECITABINE
     Dosage: 20 UNK, QD
     Route: 065
     Dates: start: 20110919, end: 20110919
  56. DECITABINE. [Concomitant]
     Active Substance: DECITABINE
     Dosage: 20 UNK, QD
     Route: 065
     Dates: start: 20110921, end: 20110921
  57. DECITABINE. [Concomitant]
     Active Substance: DECITABINE
     Dosage: 20 UNK, QD
     Route: 065
     Dates: start: 20110922, end: 20110922
  58. DECITABINE. [Concomitant]
     Active Substance: DECITABINE
     Dosage: 20 UNK, QD
     Route: 065
     Dates: start: 20111026, end: 20111026
  59. BATROXOBIN [Concomitant]
     Active Substance: BATROXOBIN
     Indication: PRODUCT USED FOR UNKNOWN INDICATION
     Dosage: 6 UNK
     Route: 065
     Dates: start: 20120112, end: 20120115
  60. CEFTIZOXIME [Concomitant]
     Active Substance: CEFTIZOXIME
     Indication: PRODUCT USED FOR UNKNOWN INDICATION
     Dosage: 3000 MILLIGRAM
     Route: 065
     Dates: start: 20120112, end: 20120116
  61. CHLORPHENAMINE [Concomitant]
     Active Substance: CHLORPHENIRAMINE MALEATE
     Dosage: 2 MILLIGRAM
     Route: 065
     Dates: start: 20111110, end: 20111110
  62. CHLORPHENAMINE [Concomitant]
     Active Substance: CHLORPHENIRAMINE MALEATE
     Dosage: 4 MILLIGRAM
     Route: 065
     Dates: start: 20120105, end: 20120106
  63. HYDROCORTISONE. [Concomitant]
     Active Substance: HYDROCORTISONE
     Indication: PRODUCT USED FOR UNKNOWN INDICATION
     Dosage: 100 MILLIGRAM
     Route: 065
     Dates: start: 20120110, end: 20120111
  64. MISOPROSTOL. [Concomitant]
     Active Substance: MISOPROSTOL
     Dosage: 200 UNK
     Route: 065
     Dates: start: 20120117, end: 20120123
  65. LIPASE;MOLSIN;PANCREATIN [Concomitant]
     Dosage: 2 UNK
     Route: 065
     Dates: start: 20120117, end: 20120117
  66. PARACETAMOL [Concomitant]
     Active Substance: ACETAMINOPHEN
     Indication: PRODUCT USED FOR UNKNOWN INDICATION
     Dosage: 650 MILLIGRAM
     Route: 065
     Dates: start: 20111109, end: 20111109
  67. FILGRASTIM [Suspect]
     Active Substance: FILGRASTIM
     Dosage: 0.7 UNK
     Route: 065
     Dates: start: 20120110, end: 20120113
  68. DECITABINE. [Concomitant]
     Active Substance: DECITABINE
     Indication: PRODUCT USED FOR UNKNOWN INDICATION
     Dosage: 20 UNK, QD
     Route: 065
     Dates: start: 20110822, end: 20110822
  69. DECITABINE. [Concomitant]
     Active Substance: DECITABINE
     Dosage: 20 UNK, QD
     Route: 065
     Dates: start: 20110824, end: 20110824
  70. DECITABINE. [Concomitant]
     Active Substance: DECITABINE
     Dosage: 20 UNK, QD
     Route: 065
     Dates: start: 20110826, end: 20110826
  71. DECITABINE. [Concomitant]
     Active Substance: DECITABINE
     Dosage: 20 UNK, QD
     Route: 065
     Dates: start: 20111027, end: 20111027
  72. BROMHEXINE [Concomitant]
     Active Substance: BROMHEXINE
     Indication: PRODUCT USED FOR UNKNOWN INDICATION
     Dosage: 24 MILLIGRAM
     Route: 065
     Dates: start: 20120115, end: 20120117
  73. CEFAMANDOLE [Concomitant]
     Active Substance: CEFAMANDOLE
     Indication: PRODUCT USED FOR UNKNOWN INDICATION
     Dosage: 1000 MILLIGRAM
     Route: 065
     Dates: start: 20120113, end: 20120113
  74. CEFPIROME [Concomitant]
     Active Substance: CEFPIROME
     Dosage: 2000 MILLIGRAM
     Route: 065
     Dates: start: 20120111, end: 20120112
  75. CEFTAZIDIME. [Concomitant]
     Active Substance: CEFTAZIDIME
     Indication: PRODUCT USED FOR UNKNOWN INDICATION
     Dosage: 6000 MILLIGRAM
     Route: 065
     Dates: start: 20111109, end: 20111118
  76. CHLORPHENAMINE [Concomitant]
     Active Substance: CHLORPHENIRAMINE MALEATE
     Dosage: 8 MILLIGRAM
     Route: 065
     Dates: start: 20120102, end: 20120102
  77. ITRACONAZOLE. [Concomitant]
     Active Substance: ITRACONAZOLE
     Indication: PRODUCT USED FOR UNKNOWN INDICATION
     Dosage: 2 UNK
     Route: 065
     Dates: start: 20110818, end: 20110904
  78. ITRACONAZOLE. [Concomitant]
     Active Substance: ITRACONAZOLE
     Dosage: 20 MILLIGRAM
     Route: 065
     Dates: start: 20111109, end: 20111109
  79. ITRACONAZOLE. [Concomitant]
     Active Substance: ITRACONAZOLE
     Dosage: 20 UNK
     Route: 065
     Dates: start: 20110905, end: 20110918
  80. LAFUTIDINE [Concomitant]
     Active Substance: LAFUTIDINE
     Dosage: 20 MILLIGRAM
     Route: 065
     Dates: start: 20120127, end: 20120131
  81. PREDNISOLONE. [Concomitant]
     Active Substance: PREDNISOLONE
     Indication: PRODUCT USED FOR UNKNOWN INDICATION
     Dosage: 10 MILLIGRAM
     Route: 065
     Dates: start: 20111125, end: 20111201
  82. PREDNISOLONE. [Concomitant]
     Active Substance: PREDNISOLONE
     Dosage: 7.5 MILLIGRAM
     Route: 065
     Dates: start: 20111209, end: 20111218
  83. PROPACETAMOL [Concomitant]
     Active Substance: PROPACETAMOL
     Indication: PRODUCT USED FOR UNKNOWN INDICATION
     Dosage: 1 UNK
     Route: 065
     Dates: start: 20120115, end: 20120115
  84. PROPACETAMOL [Concomitant]
     Active Substance: PROPACETAMOL
     Dosage: 1000 MILLIGRAM
     Route: 065
     Dates: start: 20120102, end: 20120102
  85. CHLORPHENAMINE [Concomitant]
     Active Substance: CHLORPHENIRAMINE MALEATE
     Dosage: 8 MILLIGRAM
     Route: 065
     Dates: start: 20120112, end: 20120113
  86. CHLORPHENAMINE [Concomitant]
     Active Substance: CHLORPHENIRAMINE MALEATE
     Dosage: 16 MILLIGRAM
     Route: 065
     Dates: start: 20120107, end: 20120107
  87. MISOPROSTOL. [Concomitant]
     Active Substance: MISOPROSTOL
     Dosage: 200 UNK
     Route: 065
     Dates: start: 20120102, end: 20120104
  88. PREDNISOLONE. [Concomitant]
     Active Substance: PREDNISOLONE
     Dosage: 10 MILLIGRAM
     Route: 065
     Dates: start: 20120108, end: 20120108
  89. PREDNISOLONE. [Concomitant]
     Active Substance: PREDNISOLONE
     Dosage: 30 MILLIGRAM
     Route: 065
     Dates: start: 20120106, end: 20120106

REACTIONS (14)
  - Rash [Recovered/Resolved]
  - Upper respiratory tract infection [Recovered/Resolved]
  - Stomatitis [Recovered/Resolved]
  - Dyspepsia [Recovered/Resolved]
  - Rhinorrhoea [Recovered/Resolved]
  - Neck pain [Recovered/Resolved]
  - Nausea [Recovered/Resolved]
  - Neutropenia [Recovered/Resolved]
  - Febrile neutropenia [Recovered/Resolved]
  - Arthralgia [Recovered/Resolved]
  - Decreased appetite [Recovered/Resolved]
  - Platelet count decreased [Recovered/Resolved]
  - Urinary tract infection [Recovered/Resolved]
  - Asthenia [Recovered/Resolved]

NARRATIVE: CASE EVENT DATE: 20111110
